FAERS Safety Report 4594857-1 (Version None)
Quarter: 2005Q1

REPORT INFORMATION
  Report Type: 
  Country: None (occurrence: None)
  Receive Date: 20050223
  Receipt Date: 20050210
  Transmission Date: 20050727
  Serious: Yes (Other)
  Sender: FDA-Public Use
  Company Number: 200510067BYL

PATIENT
  Age: 62 Year
  Sex: Male

DRUGS (3)
  1. ADALAT [Suspect]
     Indication: HYPERTENSION
     Dosage: 40 MG, QD, ORAL
     Route: 048
     Dates: start: 20050105, end: 20050209
  2. BLOPRESS  (CANDESARTAN CILEXETIL) [Suspect]
     Indication: HYPERTENSION
     Dosage: 8 MG, QD, ORAL
     Route: 048
     Dates: start: 20050105, end: 20050209
  3. CONIEL [Concomitant]

REACTIONS (2)
  - OEDEMA PERIPHERAL [None]
  - PROTEIN URINE PRESENT [None]
